FAERS Safety Report 8335091-9 (Version None)
Quarter: 2012Q2

REPORT INFORMATION
  Report Type: 
  Country: None (occurrence: None)
  Receive Date: 20120503
  Receipt Date: 20100503
  Transmission Date: 20120825
  Serious: No
  Sender: FDA-Public Use
  Company Number: US-TEVA-2010002552

PATIENT
  Sex: Male
  Weight: 73.094 kg

DRUGS (2)
  1. NUVIGIL [Suspect]
     Dosage: 150 MILLIGRAM;
     Route: 048
     Dates: start: 20100416
  2. NUVIGIL [Suspect]
     Indication: NARCOLEPSY
     Dosage: 250 MILLIGRAM;
     Route: 048
     Dates: start: 20100414, end: 20100416

REACTIONS (3)
  - DRUG EFFECT INCREASED [None]
  - INSOMNIA [None]
  - DRUG INEFFECTIVE [None]
